FAERS Safety Report 11578165 (Version 2)
Quarter: 2015Q4

REPORT INFORMATION
  Report Type: Spontaneous
  Country: US (occurrence: US)
  Receive Date: 20150930
  Receipt Date: 20151006
  Transmission Date: 20160304
  Serious: No
  Sender: FDA-Public Use
  Company Number: US-BAYER-2015-430632

PATIENT
  Age: 72 Year
  Sex: Male
  Weight: 72.56 kg

DRUGS (1)
  1. ALEVE [Suspect]
     Active Substance: NAPROXEN SODIUM
     Indication: ANALGESIC THERAPY
     Dosage: 1 DF, QD
     Route: 048
     Dates: start: 201505, end: 20150922

REACTIONS (4)
  - Pain in extremity [Not Recovered/Not Resolved]
  - Axillary pain [Not Recovered/Not Resolved]
  - Myalgia [Not Recovered/Not Resolved]
  - Product use issue [None]

NARRATIVE: CASE EVENT DATE: 201505
